FAERS Safety Report 4509379-3 (Version None)
Quarter: 2004Q4

REPORT INFORMATION
  Report Type: 
  Country: None (occurrence: None)
  Receive Date: 20041025
  Receipt Date: 20040809
  Transmission Date: 20050328
  Serious: Yes (Hospitalization)
  Sender: FDA-Public Use
  Company Number: US-JNJFOC-20040803232

PATIENT
  Age: 30 Year
  Sex: Male
  Weight: 109.3169 kg

DRUGS (4)
  1. INFLIXIMAB (INFLIXIMAB, RECOMBINANT) LYOPHILIZED POWDER [Suspect]
     Indication: CROHN'S DISEASE
     Dosage: 10 MG/KG INTRAVENOUSS
     Route: 042
     Dates: start: 20020515
  2. METHOTREXATE SODIUM [Suspect]
     Indication: CROHN'S DISEASE
  3. MESALAMINE [Suspect]
     Indication: CROHN'S DISEASE
  4. PREDNISONE [Suspect]
     Indication: CROHN'S DISEASE

REACTIONS (1)
  - PNEUMONIA [None]
